FAERS Safety Report 16657357 (Version 1)
Quarter: 2019Q3

REPORT INFORMATION
  Report Type: Spontaneous
  Country: US (occurrence: US)
  Receive Date: 20190801
  Receipt Date: 20190801
  Transmission Date: 20191004
  Serious: No
  Sender: FDA-Public Use
  Company Number: US-SA-2019SA205011

PATIENT
  Age: 46 Year
  Sex: Female

DRUGS (1)
  1. KEVZARA [Suspect]
     Active Substance: SARILUMAB
     Indication: DERMATITIS ATOPIC
     Dosage: 200 MG, QOW
     Route: 058
     Dates: start: 20190605

REACTIONS (4)
  - Injection site erythema [Unknown]
  - Feeling abnormal [Unknown]
  - Product use in unapproved indication [Unknown]
  - Injection site dryness [Unknown]

NARRATIVE: CASE EVENT DATE: 2019
